FAERS Safety Report 6527750-5 (Version None)
Quarter: 2010Q1

REPORT INFORMATION
  Report Type: 
  Country: None (occurrence: None)
  Receive Date: 20100105
  Receipt Date: 20100105
  Transmission Date: 20100710
  Serious: No
  Sender: FDA-Public Use
  Company Number: None

PATIENT
  Age: 76 Year
  Sex: Female
  Weight: 63.5036 kg

DRUGS (1)
  1. FENTANYL 75 MCG/HR TRANSDERM PATCH [Suspect]
     Indication: PAIN
     Dosage: Q 3 D TRANSDERMAL
     Route: 062
     Dates: start: 20091025

REACTIONS (1)
  - APPLICATION SITE BURN [None]
